FAERS Safety Report 9418784 (Version 2)
Quarter: 2014Q2

REPORT INFORMATION
  Report Type: Spontaneous
  Country: US (occurrence: US)
  Receive Date: 20130725
  Receipt Date: 20140523
  Transmission Date: 20141212
  Serious: No
  Sender: FDA-Public Use
  Company Number: US-PFIZER INC-2013216081

PATIENT
  Age: 46 Year
  Sex: Female
  Weight: 81.18 kg

DRUGS (2)
  1. NEURONTIN [Suspect]
     Indication: NERVE INJURY
     Dosage: 650 MG, 2X/DAY
     Route: 048
     Dates: start: 2013
  2. NEURONTIN [Suspect]
     Dosage: 650 MG, 3X/DAY

REACTIONS (2)
  - Drug ineffective [Unknown]
  - Pain [Unknown]
